FAERS Safety Report 21197932 (Version 3)
Quarter: 2022Q4

REPORT INFORMATION
  Report Type: Report from Study
  Country: US (occurrence: US)
  Receive Date: 20220810
  Receipt Date: 20221130
  Transmission Date: 20230112
  Serious: Yes (Other)
  Sender: FDA-Public Use
  Company Number: US-ABBVIE-22K-163-4499000-00

PATIENT
  Age: 69 Year
  Sex: Female
  Weight: 117 kg

DRUGS (17)
  1. SKYRIZI [Suspect]
     Active Substance: RISANKIZUMAB-RZAA
     Indication: Psoriasis
     Route: 058
     Dates: start: 20210923
  2. DOXAZOSIN MESYLATE [Concomitant]
     Active Substance: DOXAZOSIN MESYLATE
     Indication: Product used for unknown indication
     Dosage: 1 MG TABLET
  3. PFIZER-BIONTECH COVID-19 VACCINE [Concomitant]
     Active Substance: TOZINAMERAN
     Indication: COVID-19 immunisation
     Dosage: TIME INTERVAL: 1 TOTAL: 1ST DOSE, ONE IN ONCE
     Route: 030
     Dates: start: 20210228, end: 20210228
  4. PFIZER-BIONTECH COVID-19 VACCINE [Concomitant]
     Active Substance: TOZINAMERAN
     Indication: COVID-19 immunisation
     Dosage: TIME INTERVAL: 1 TOTAL: 2ND DOSE, ONE IN ONCE
     Route: 030
     Dates: start: 20210320, end: 20210320
  5. PFIZER-BIONTECH COVID-19 VACCINE [Concomitant]
     Active Substance: TOZINAMERAN
     Indication: COVID-19 immunisation
     Dosage: TIME INTERVAL: 1 TOTAL: 3RD DOSE, ONE IN ONCE
     Route: 030
     Dates: start: 20211116, end: 20211116
  6. ASPIRIN [Concomitant]
     Active Substance: ASPIRIN
     Indication: Product used for unknown indication
     Dosage: 81 MG TAB CHEW
  7. METOPROLOL SUCCINATE [Concomitant]
     Active Substance: METOPROLOL SUCCINATE
     Indication: Product used for unknown indication
  8. VITAMIN D2 [Concomitant]
     Active Substance: ERGOCALCIFEROL
     Indication: Product used for unknown indication
     Dosage: 1250 MCG CAPSULE
  9. GLIPIZIDE [Concomitant]
     Active Substance: GLIPIZIDE
     Indication: Product used for unknown indication
     Dosage: FORM STRENGTH: 5 MG
     Route: 048
  10. TRIPLE FLEX [Concomitant]
     Indication: Product used for unknown indication
     Dosage: 750-375MG TABLET
  11. ALIGN [Concomitant]
     Active Substance: BIFIDOBACTERIUM LONGUM SUBSP. INFANTIS
     Indication: Product used for unknown indication
     Dosage: 4 MG
  12. KRILL OIL [Concomitant]
     Active Substance: DIETARY SUPPLEMENT\KRILL OIL
     Indication: Product used for unknown indication
     Dosage: 1000-130MG CAPSULE
  13. METFORMIN ER GASTRIC [Concomitant]
     Indication: Product used for unknown indication
  14. PROTONIX [Concomitant]
     Active Substance: PANTOPRAZOLE SODIUM
     Indication: Product used for unknown indication
     Dosage: 40 MG TABLET DR
  15. NEURIVAS [Concomitant]
     Indication: Product used for unknown indication
     Dosage: 100-100 MG CAPSULE
  16. LISINOPRIL [Concomitant]
     Active Substance: LISINOPRIL
     Indication: Product used for unknown indication
     Dosage: FORM STRENGTH: 5 MG
     Route: 048
  17. IRON [Concomitant]
     Active Substance: IRON
     Indication: Product used for unknown indication
     Dosage: 159 (45)MG TABLET ER

REACTIONS (5)
  - Cerebral congestion [Unknown]
  - Headache [Not Recovered/Not Resolved]
  - Cerebral cyst [Unknown]
  - Headache [Recovered/Resolved]
  - Pruritus [Recovered/Resolved]

NARRATIVE: CASE EVENT DATE: 20220625
